FAERS Safety Report 17374956 (Version 2)
Quarter: 2020Q1

REPORT INFORMATION
  Report Type: Spontaneous
  Country: JP (occurrence: JP)
  Receive Date: 20200205
  Receipt Date: 20200207
  Transmission Date: 20200409
  Serious: Yes (Hospitalization, Other)
  Sender: FDA-Public Use
  Company Number: JP-JNJFOC-20190633545

PATIENT
  Sex: Female

DRUGS (1)
  1. INVEGA [Suspect]
     Active Substance: PALIPERIDONE
     Indication: PRODUCT USED FOR UNKNOWN INDICATION
     Route: 048

REACTIONS (9)
  - Dysarthria [Unknown]
  - Suicidal ideation [Unknown]
  - Senile dementia [Unknown]
  - Hallucination, auditory [Unknown]
  - Movement disorder [Unknown]
  - Hallucination [Unknown]
  - Dyspnoea [Unknown]
  - Persecutory delusion [Unknown]
  - Drug ineffective [Unknown]
